FAERS Safety Report 7311538-1 (Version None)
Quarter: 2011Q1

REPORT INFORMATION
  Report Type: 
  Country: None (occurrence: None)
  Receive Date: 20110216
  Receipt Date: 20110216
  Transmission Date: 20110831
  Serious: Yes (Hospitalization, Other)
  Sender: FDA-Public Use
  Company Number: None

PATIENT
  Age: 60 Year
  Sex: Female
  Weight: 68.0396 kg

DRUGS (1)
  1. OSMOPREP [Suspect]
     Indication: COLONOSCOPY
     Dosage: 34 GIVEN BUT 20 TAKEN 4 TAB/15MIN PO
     Route: 048
     Dates: start: 20110125, end: 20110125

REACTIONS (8)
  - DIZZINESS [None]
  - FATIGUE [None]
  - CARDIAC DISORDER [None]
  - DEHYDRATION [None]
  - CONFUSIONAL STATE [None]
  - HEADACHE [None]
  - NAUSEA [None]
  - VOMITING [None]
